FAERS Safety Report 22038764 (Version 1)
Quarter: 2023Q1

REPORT INFORMATION
  Report Type: Spontaneous
  Country: US (occurrence: US)
  Receive Date: 20230227
  Receipt Date: 20230227
  Transmission Date: 20230418
  Serious: No
  Sender: FDA-Public Use
  Company Number: US-BIOCON-BCN-2023-000126

PATIENT
  Sex: Female

DRUGS (1)
  1. EVEROLIMUS [Suspect]
     Active Substance: EVEROLIMUS
     Indication: Product used for unknown indication

REACTIONS (3)
  - Product packaging difficult to open [Unknown]
  - Product physical issue [Unknown]
  - Poor quality product administered [Unknown]
